FAERS Safety Report 9554394 (Version 2)
Quarter: 2013Q4

REPORT INFORMATION
  Report Type: Spontaneous
  Country: CA (occurrence: CA)
  Receive Date: 20130925
  Receipt Date: 20131007
  Transmission Date: 20140711
  Serious: Yes (Other)
  Sender: FDA-Public Use
  Company Number: PHHY2013CA106813

PATIENT
  Age: 87 Year
  Sex: Female

DRUGS (11)
  1. ACLASTA [Suspect]
     Indication: OSTEOPOROSIS
     Dosage: UNK
     Route: 042
     Dates: start: 20130913, end: 20130913
  2. ANTICOAGULANTS [Concomitant]
  3. DILAUDID [Concomitant]
     Dosage: UNK
  4. FERROUS FUMARATE [Concomitant]
  5. LACTULOSE [Concomitant]
  6. ATORVASTATIN [Concomitant]
  7. CYANOCOBALAMIN [Concomitant]
  8. CHOLECALCIFEROL [Concomitant]
  9. BISOPROLOL [Concomitant]
  10. LEVOTHYROXINE [Concomitant]
  11. PANTOPRAZOLE [Concomitant]

REACTIONS (1)
  - Platelet count decreased [Recovering/Resolving]
